APPROVED DRUG PRODUCT: ALENDRONATE SODIUM
Active Ingredient: ALENDRONATE SODIUM
Strength: EQ 70MG BASE/75ML
Dosage Form/Route: SOLUTION;ORAL
Application: A090520 | Product #001 | TE Code: AA
Applicant: HIKMA PHARMACEUTICALS USA INC
Approved: Feb 25, 2013 | RLD: No | RS: Yes | Type: RX